FAERS Safety Report 25308483 (Version 2)
Quarter: 2025Q2

REPORT INFORMATION
  Report Type: Spontaneous
  Country: US (occurrence: US)
  Receive Date: 20250513
  Receipt Date: 20250520
  Transmission Date: 20250717
  Serious: No
  Sender: SANOFI AVENTIS
  Company Number: US-SA-2025SA134178

PATIENT
  Age: 33 Year
  Sex: Female

DRUGS (1)
  1. TZIELD [Suspect]
     Active Substance: TEPLIZUMAB-MZWV
     Dosage: 1638 UG, QD

REACTIONS (6)
  - Dyspnoea [Unknown]
  - Dizziness [Unknown]
  - Chills [Unknown]
  - Nausea [Unknown]
  - Rash [Recovering/Resolving]
  - Fatigue [Unknown]
